FAERS Safety Report 19956048 (Version 1)
Quarter: 2021Q4

REPORT INFORMATION
  Report Type: Spontaneous
  Country: US (occurrence: US)
  Receive Date: 20211014
  Receipt Date: 20211014
  Transmission Date: 20220303
  Serious: Yes (Other)
  Sender: FDA-Public Use
  Company Number: 2021A763943

PATIENT
  Sex: Female
  Weight: 55.3 kg

DRUGS (1)
  1. LYNPARZA [Suspect]
     Active Substance: OLAPARIB
     Indication: Ovarian cancer
     Dosage: 3 PILLS A DAY
     Route: 048
     Dates: start: 202001, end: 20200701

REACTIONS (2)
  - Ovarian cancer recurrent [Unknown]
  - Metastases to lymph nodes [Unknown]
